FAERS Safety Report 5132705-1 (Version None)
Quarter: 2006Q4

REPORT INFORMATION
  Report Type: 
  Country: None (occurrence: None)
  Receive Date: 20061023
  Receipt Date: 20061011
  Transmission Date: 20070319
  Serious: Yes (Death, Hospitalization)
  Sender: FDA-Public Use
  Company Number: US-GLAXOSMITHKLINE-A0623576A

PATIENT
  Age: 13 Year
  Sex: Male
  Weight: 70 kg

DRUGS (3)
  1. ADVAIR HFA [Suspect]
     Indication: ASTHMA
     Dosage: 1PUFF TWICE PER DAY
     Route: 055
     Dates: start: 20030919, end: 20060518
  2. SINGULAIR [Concomitant]
  3. ALBUTEROL [Concomitant]

REACTIONS (21)
  - ANOXIC ENCEPHALOPATHY [None]
  - ASTHMA [None]
  - BRADYCARDIA [None]
  - BRAIN DEATH [None]
  - BRAIN OEDEMA [None]
  - CARDIO-RESPIRATORY ARREST [None]
  - CHEST DISCOMFORT [None]
  - COMA [None]
  - CONVULSION [None]
  - DIABETES INSIPIDUS [None]
  - DYSPNOEA [None]
  - ENCEPHALOPATHY [None]
  - ERYTHEMA [None]
  - HYPERGLYCAEMIA [None]
  - HYPERNATRAEMIA [None]
  - METABOLIC ACIDOSIS [None]
  - RESPIRATORY FAILURE [None]
  - SUBARACHNOID HAEMORRHAGE [None]
  - URTICARIA [None]
  - VENTRICULAR FIBRILLATION [None]
  - VENTRICULAR TACHYCARDIA [None]
